FAERS Safety Report 5102681-6 (Version None)
Quarter: 2006Q3

REPORT INFORMATION
  Report Type: 
  Country: None (occurrence: None)
  Receive Date: 20060912
  Receipt Date: 20060418
  Transmission Date: 20061208
  Serious: Yes (Death, Other)
  Sender: FDA-Public Use
  Company Number: US-PURDUE-USA_2006_0024024

PATIENT
  Age: 68 Year
  Sex: Female
  Weight: 42 kg

DRUGS (2)
  1. OXYCODONE HCL [Suspect]
     Indication: CANCER PAIN
     Dosage: UNK MG, Q12H
     Route: 065
     Dates: start: 20051026, end: 20060623
  2. OXYIR CAPSULES 5 MG [Concomitant]
     Indication: BREAKTHROUGH PAIN
     Dosage: 15 MG, PRN
     Route: 065
     Dates: start: 20051001, end: 20060601

REACTIONS (6)
  - DISEASE PROGRESSION [None]
  - DYSPHEMIA [None]
  - MEMORY IMPAIRMENT [None]
  - METASTASES TO CENTRAL NERVOUS SYSTEM [None]
  - METASTASES TO SPINE [None]
  - SPEECH DISORDER [None]
